FAERS Safety Report 20314801 (Version 1)
Quarter: 2022Q1

REPORT INFORMATION
  Report Type: Spontaneous
  Country: US (occurrence: None)
  Receive Date: 20220110
  Receipt Date: 20220110
  Transmission Date: 20220423
  Serious: No
  Sender: FDA-Public Use
  Company Number: US-ROCHE-2893897

PATIENT
  Age: 73 Year
  Sex: Female

DRUGS (2)
  1. RITUXAN [Suspect]
     Active Substance: RITUXIMAB
     Indication: Chronic lymphocytic leukaemia
     Route: 065
  2. COVID-19 VACCINE [Concomitant]

REACTIONS (3)
  - Lymphadenopathy [Not Recovered/Not Resolved]
  - Swelling [Unknown]
  - Mass [Unknown]

NARRATIVE: CASE EVENT DATE: 20210217
